FAERS Safety Report 5259909-1 (Version None)
Quarter: 2007Q1

REPORT INFORMATION
  Report Type: 
  Country: None (occurrence: None)
  Receive Date: 20070309
  Receipt Date: 20070227
  Transmission Date: 20070707
  Serious: Yes (Hospitalization)
  Sender: FDA-Public Use
  Company Number: FR-ROCHE-484987

PATIENT
  Age: 51 Year
  Sex: Female
  Weight: 122 kg

DRUGS (3)
  1. XENICAL [Suspect]
     Indication: OVERWEIGHT
     Route: 065
     Dates: start: 20070202
  2. OLMETEC [Concomitant]
     Indication: HYPERTENSION
  3. LOZOL [Concomitant]
     Indication: HYPERTENSION

REACTIONS (1)
  - ANAL FISSURE [None]
